FAERS Safety Report 5376389-6 (Version None)
Quarter: 2007Q3

REPORT INFORMATION
  Report Type: 
  Country: None (occurrence: None)
  Receive Date: 20070702
  Receipt Date: 20070620
  Transmission Date: 20080115
  Serious: Yes (Other)
  Sender: FDA-Public Use
  Company Number: JP-ELI_LILLY_AND_COMPANY-JP200706006162

PATIENT
  Age: 47 Year
  Sex: Female

DRUGS (4)
  1. ZYPREXA [Suspect]
     Indication: ANXIETY DISORDER
     Route: 048
  2. PAROXETINE HYDROCHLORIDE [Concomitant]
     Indication: ANXIETY DISORDER
     Route: 048
  3. DROPERIDOL [Concomitant]
     Route: 065
  4. MANNITOL [Concomitant]
     Route: 065

REACTIONS (4)
  - HYPOKALAEMIA [None]
  - INTRACRANIAL ANEURYSM [None]
  - NEUROLEPTIC MALIGNANT SYNDROME [None]
  - PYREXIA [None]
